FAERS Safety Report 11041405 (Version 2)
Quarter: 2015Q2

REPORT INFORMATION
  Report Type: Spontaneous
  Country: US (occurrence: US)
  Receive Date: 20150416
  Receipt Date: 20150525
  Transmission Date: 20150821
  Serious: No
  Sender: FDA-Public Use
  Company Number: US-JNJFOC-20131209574

PATIENT
  Age: 77 Year
  Sex: Female

DRUGS (3)
  1. XARELTO [Suspect]
     Active Substance: RIVAROXABAN
     Indication: DEEP VEIN THROMBOSIS
     Route: 048
     Dates: start: 20131211
  2. AMIODARONE [Concomitant]
     Active Substance: AMIODARONE
     Indication: HEART RATE
     Route: 065
  3. NTG [Concomitant]
     Active Substance: NITROGLYCERIN
     Indication: ANGINA PECTORIS
     Route: 065

REACTIONS (2)
  - Fatigue [Unknown]
  - Burning sensation [Unknown]

NARRATIVE: CASE EVENT DATE: 201312
